FAERS Safety Report 24039268 (Version 2)
Quarter: 2024Q3

REPORT INFORMATION
  Report Type: Spontaneous
  Country: DE (occurrence: DE)
  Receive Date: 20240702
  Receipt Date: 20240822
  Transmission Date: 20241017
  Serious: Yes (Other)
  Sender: SANDOZ
  Company Number: DE-BRISTOL-MYERS SQUIBB COMPANY-2024-091479

PATIENT
  Age: 64 Year
  Sex: Female
  Weight: 53 kg

DRUGS (14)
  1. CARBOPLATIN [Suspect]
     Active Substance: CARBOPLATIN
     Indication: Non-small cell lung cancer
     Dosage: 5 AUC - MG/MIN*ML
     Route: 042
     Dates: start: 20240506
  2. CARBOPLATIN [Suspect]
     Active Substance: CARBOPLATIN
     Dosage: 5 AUC - MG/MIN*ML
     Route: 042
     Dates: start: 20240528
  3. CARBOPLATIN [Suspect]
     Active Substance: CARBOPLATIN
     Dosage: 5 AUC - MG/MIN*ML
     Route: 042
     Dates: start: 20240618
  4. NIVOLUMAB [Suspect]
     Active Substance: NIVOLUMAB
     Indication: Non-small cell lung cancer
     Dosage: 360.000MG TIW
     Route: 042
     Dates: start: 20240506
  5. NIVOLUMAB [Suspect]
     Active Substance: NIVOLUMAB
     Dosage: 360.000MG TIW
     Route: 042
     Dates: start: 20240506
  6. PEMETREXED [Suspect]
     Active Substance: PEMETREXED
     Dosage: 500 MG/M2
     Route: 042
     Dates: start: 20240618
  7. PEMETREXED [Suspect]
     Active Substance: PEMETREXED
     Indication: Non-small cell lung cancer
     Dosage: 500.000MG/M2
     Route: 042
     Dates: start: 20240506
  8. PEMETREXED [Suspect]
     Active Substance: PEMETREXED
     Dosage: 500.000MG/M2
     Route: 042
     Dates: start: 20240528
  9. BAMIPIN [Concomitant]
     Indication: Prophylaxis
     Dosage: P.R.N. (AS NEEDED)
     Route: 062
     Dates: start: 20240507, end: 20240528
  10. BISOPROLOL [Concomitant]
     Active Substance: BISOPROLOL\BISOPROLOL FUMARATE
     Indication: Hypertonia
     Dosage: 2.500MG QD
     Route: 048
     Dates: start: 2020
  11. HYALURONATE SODIUM [Concomitant]
     Active Substance: HYALURONATE SODIUM
     Indication: Prophylaxis
     Dosage: 1 (UNKNOWN) P.R.N. (AS NEEDED)
     Route: 061
     Dates: start: 20240507
  12. LEVOTHYROXINE [Concomitant]
     Active Substance: LEVOTHYROXINE\LEVOTHYROXINE SODIUM
     Indication: Autoimmune thyroiditis
     Dosage: DAILY
     Route: 048
     Dates: start: 1980
  13. LEVOTHYROXINE [Concomitant]
     Active Substance: LEVOTHYROXINE\LEVOTHYROXINE SODIUM
     Dosage: 70 UG, QD
     Route: 048
     Dates: start: 202406
  14. Tannacomp [Concomitant]
     Indication: Prophylaxis
     Dosage: P.R.N. (AS NEEDED)
     Route: 048
     Dates: start: 20240510

REACTIONS (7)
  - Hypothyroidism [Not Recovered/Not Resolved]
  - Condition aggravated [Not Recovered/Not Resolved]
  - Fatigue [Not Recovered/Not Resolved]
  - Diarrhoea [Recovered/Resolved]
  - Immune-mediated dermatitis [Recovered/Resolved]
  - Cough [Not Recovered/Not Resolved]
  - Dry eye [Recovered/Resolved]

NARRATIVE: CASE EVENT DATE: 20240507
